FAERS Safety Report 5178403-X (Version None)
Quarter: 2006Q4

REPORT INFORMATION
  Report Type: 
  Country: None (occurrence: None)
  Receive Date: 20061218
  Receipt Date: 20060823
  Transmission Date: 20070319
  Serious: No
  Sender: FDA-Public Use
  Company Number: US-AMGEN-KDL191127

PATIENT
  Sex: Female

DRUGS (2)
  1. ENBREL [Suspect]
     Indication: RHEUMATOID ARTHRITIS
     Route: 058
     Dates: start: 20060722
  2. ENBREL [Suspect]
     Indication: DRUG USE FOR UNKNOWN INDICATION

REACTIONS (7)
  - FATIGUE [None]
  - FOOT FRACTURE [None]
  - HYPOAESTHESIA [None]
  - INFECTED CYST [None]
  - INJECTION SITE PAIN [None]
  - PARAESTHESIA [None]
  - VISION BLURRED [None]
